FAERS Safety Report 20040406 (Version 1)
Quarter: 2021Q4

REPORT INFORMATION
  Report Type: Spontaneous
  Country: US (occurrence: None)
  Receive Date: 20211105
  Receipt Date: 20211105
  Transmission Date: 20220304
  Serious: No
  Sender: FDA-Public Use
  Company Number: None

PATIENT
  Age: 3 Year
  Sex: Male

DRUGS (1)
  1. PULMOZYME [Suspect]
     Active Substance: DORNASE ALFA
     Indication: Atelectasis
     Dosage: OTHER FREQUENCY : OTHER;?
     Route: 055
     Dates: start: 202111

REACTIONS (1)
  - Off label use [None]

NARRATIVE: CASE EVENT DATE: 20211105
